FAERS Safety Report 8346933-5 (Version None)
Quarter: 2012Q2

REPORT INFORMATION
  Report Type: 
  Country: None (occurrence: None)
  Receive Date: 20120509
  Receipt Date: 20120504
  Transmission Date: 20120825
  Serious: Yes (Hospitalization, Other)
  Sender: FDA-Public Use
  Company Number: PHHY2012AT038323

PATIENT
  Age: 62 Year
  Sex: Female

DRUGS (17)
  1. FENTANYL [Concomitant]
     Dosage: 150 MG DAILY
  2. DIAZEPAM [Suspect]
     Dosage: 2-5 MG DAILY
  3. SIMVASTATIN [Concomitant]
     Dosage: 40 MG, UNK
  4. METAMIZOLE [Concomitant]
     Dosage: 4 G, UNK
  5. METOPROLOL TARTRATE [Concomitant]
     Dosage: UNK
  6. ANASTROZOLE [Concomitant]
  7. AMITRIPTYLINE HCL [Suspect]
     Dosage: 100 MG DAILY
  8. HYDROMORPHONE HCL [Suspect]
     Indication: BONE PAIN
     Dosage: 5.2 MG PER DAY
  9. LEVOTHYROXINE SODIUM [Concomitant]
     Dosage: 150 MG, UNK
  10. ACETYLSALICYLIC ACID SRT [Concomitant]
  11. FENTANYL [Concomitant]
     Dosage: 75 MG DAILY
  12. NITRGLYCERIN TRANSDERMAL SYSTEM [Concomitant]
  13. POLYETHYLENE GLYCOL [Concomitant]
  14. FLUOXETINE [Suspect]
     Dosage: 40 MG DAILY
  15. HYDROMORPHONE HCL [Suspect]
     Dosage: 20 MG, BID
  16. ALPRAZOLAM [Suspect]
     Dosage: 0.5 MG DAILY
  17. GABAPENTIN [Suspect]
     Indication: BONE PAIN
     Dosage: 900 MG PER DAY

REACTIONS (12)
  - DELIRIUM [None]
  - SEPSIS [None]
  - RENAL FAILURE [None]
  - CONFUSIONAL STATE [None]
  - AGITATION [None]
  - HALLUCINATION [None]
  - PNEUMONIA [None]
  - THROMBOCYTOPENIA [None]
  - HEMIPARESIS [None]
  - COGNITIVE DISORDER [None]
  - HYPOTENSION [None]
  - STAPHYLOCOCCAL INFECTION [None]
